FAERS Safety Report 4746883-7 (Version None)
Quarter: 2005Q3

REPORT INFORMATION
  Report Type: 
  Country: None (occurrence: None)
  Receive Date: 20050817
  Receipt Date: 20050802
  Transmission Date: 20060218
  Serious: Yes (Hospitalization)
  Sender: FDA-Public Use
  Company Number: ZA-MERCK-0508ZAF00009

PATIENT
  Age: 59 Year
  Sex: Male
  Weight: 80 kg

DRUGS (2)
  1. VIOXX [Suspect]
     Indication: ANALGESIC EFFECT
     Route: 048
     Dates: start: 20040807, end: 20040811
  2. VALDECOXIB [Concomitant]
     Indication: ANALGESIC EFFECT
     Route: 048
     Dates: start: 20040801, end: 20040804

REACTIONS (3)
  - ACUTE CORONARY SYNDROME [None]
  - ARTERIOSPASM CORONARY [None]
  - HYPERHOMOCYSTEINAEMIA [None]
